FAERS Safety Report 4849330-X (Version None)
Quarter: 2005Q4

REPORT INFORMATION
  Report Type: 
  Country: None (occurrence: None)
  Receive Date: 20051209
  Receipt Date: 20051125
  Transmission Date: 20060501
  Serious: Yes (Hospitalization)
  Sender: FDA-Public Use
  Company Number: HQWYE733229NOV05

PATIENT

DRUGS (3)
  1. ENBREL [Suspect]
     Indication: RHEUMATOID ARTHRITIS
     Route: 058
     Dates: start: 20050614, end: 20051014
  2. RHEUMATREX [Suspect]
     Dosage: UNKNOWN DOSAGE
     Route: 048
     Dates: end: 20051028
  3. BUCILLAMINE [Concomitant]
     Dosage: UNKNOWN
     Route: 048
     Dates: end: 20051028

REACTIONS (3)
  - ALANINE AMINOTRANSFERASE INCREASED [None]
  - ASPARTATE AMINOTRANSFERASE INCREASED [None]
  - HEPATIC FUNCTION ABNORMAL [None]
